FAERS Safety Report 5827877-7 (Version None)
Quarter: 2008Q3

REPORT INFORMATION
  Report Type: 
  Country: None (occurrence: None)
  Receive Date: 20080730
  Receipt Date: 20080718
  Transmission Date: 20090109
  Serious: Yes (Other)
  Sender: FDA-Public Use
  Company Number: PL-PFIZER INC-2008047990

PATIENT
  Sex: Female
  Weight: 55 kg

DRUGS (23)
  1. ZYVOX [Suspect]
     Indication: STAPHYLOCOCCAL INFECTION
     Route: 042
     Dates: start: 20080526, end: 20080528
  2. MEROPENEM [Suspect]
     Route: 042
  3. AMOXICILLIN + CLAVULANATE POTASSIUM [Concomitant]
     Route: 042
     Dates: start: 20080520, end: 20080523
  4. CIPROFLOXACIN [Concomitant]
     Route: 042
     Dates: start: 20080520, end: 20080526
  5. CLARITHROMYCIN [Concomitant]
     Route: 048
  6. CEFTAZIDIME [Concomitant]
     Route: 042
     Dates: start: 20080523, end: 20080526
  7. IMMUNE GLOBULIN INTRAVENOUS (HUMAN) [Concomitant]
     Route: 042
     Dates: start: 20080526, end: 20080526
  8. IMMUNE GLOBULIN INTRAVENOUS (HUMAN) [Concomitant]
     Route: 042
     Dates: start: 20080519, end: 20080519
  9. FILGRASTIM [Concomitant]
     Route: 058
     Dates: start: 20080526, end: 20080526
  10. FUROSEMIDE [Concomitant]
     Route: 042
     Dates: start: 20080519, end: 20080519
  11. FUROSEMIDE [Concomitant]
     Route: 042
  12. LEVOTHYROXINE SODIUM [Concomitant]
     Route: 048
  13. ALLOPURINOL [Concomitant]
     Route: 048
     Dates: start: 20080519, end: 20080526
  14. OMEPRAZOLE [Concomitant]
     Route: 048
  15. CALCIUM [Concomitant]
     Route: 048
  16. ALFACALCIDOL [Concomitant]
     Route: 048
  17. ENOXAPARIN SODIUM [Concomitant]
  18. FLUTICASONE PROPIONATE [Concomitant]
     Route: 055
  19. IPRATROPIUM BROMIDE [Concomitant]
     Route: 055
  20. ALBUTEROL [Concomitant]
     Route: 055
  21. ALBUTEROL [Concomitant]
  22. ACETAMINOPHEN [Concomitant]
     Route: 048
     Dates: start: 20080519, end: 20080527
  23. TRAMADOL HCL [Concomitant]
     Route: 048
     Dates: start: 20080522, end: 20080522

REACTIONS (1)
  - RENAL FAILURE CHRONIC [None]
